FAERS Safety Report 8615391-5 (Version None)
Quarter: 2012Q3

REPORT INFORMATION
  Report Type: 
  Country: None (occurrence: None)
  Receive Date: 20120823
  Receipt Date: 20120821
  Transmission Date: 20120928
  Serious: Yes (Hospitalization)
  Sender: FDA-Public Use
  Company Number: US-PFIZER INC-2012205264

PATIENT
  Age: 87 Year
  Sex: Female
  Weight: 70.295 kg

DRUGS (1)
  1. ARTHROTEC [Suspect]
     Indication: ARTHRITIS
     Dosage: ^75 MG^, DAILY
     Dates: end: 20120101

REACTIONS (7)
  - ARTHRITIS [None]
  - OEDEMA PERIPHERAL [None]
  - WEIGHT INCREASED [None]
  - JOINT SWELLING [None]
  - HYPERTENSION [None]
  - ARTHRALGIA [None]
  - EPIGASTRIC DISCOMFORT [None]
